FAERS Safety Report 10238526 (Version 1)
Quarter: 2014Q2

REPORT INFORMATION
  Report Type: Report from Study
  Country: PL (occurrence: PL)
  Receive Date: 20140616
  Receipt Date: 20140616
  Transmission Date: 20141212
  Serious: Yes (Other)
  Sender: FDA-Public Use
  Company Number: PL-ASTELLAS-2014EU007548

PATIENT
  Age: 54 Year
  Sex: Male

DRUGS (4)
  1. TACROLIMUS [Suspect]
     Indication: RENAL TRANSPLANT
     Route: 065
     Dates: start: 20120131, end: 20121002
  2. TACROLIMUS [Suspect]
     Route: 065
     Dates: start: 20121002
  3. RAPAMUNE [Concomitant]
     Indication: PRODUCT USED FOR UNKNOWN INDICATION
     Dosage: 2 UNK, UNKNOWN FREQ.
     Route: 065
  4. STEROID [Concomitant]
     Indication: PRODUCT USED FOR UNKNOWN INDICATION
     Dosage: 7.5 UNK, UNKNOWN FREQ.
     Route: 065

REACTIONS (1)
  - Cholecystectomy [Unknown]
